FAERS Safety Report 5521493-2 (Version None)
Quarter: 2007Q4

REPORT INFORMATION
  Report Type: 
  Country: None (occurrence: None)
  Receive Date: 20071119
  Receipt Date: 20071026
  Transmission Date: 20080405
  Serious: Yes (Other)
  Sender: FDA-Public Use
  Company Number: BR-PFIZER INC-2007096125

PATIENT
  Sex: Female
  Weight: 43 kg

DRUGS (3)
  1. REVATIO [Suspect]
     Indication: PULMONARY HYPERTENSION
     Dosage: DAILY DOSE:60MG
     Route: 048
  2. ALL OTHER THERAPEUTIC PRODUCTS [Concomitant]
  3. SPIRONOLACTONE [Concomitant]

REACTIONS (5)
  - ABNORMAL BEHAVIOUR [None]
  - DIZZINESS [None]
  - FEELING OF DESPAIR [None]
  - FEELING OF RELAXATION [None]
  - MOVEMENT DISORDER [None]
